FAERS Safety Report 18396219 (Version 2)
Quarter: 2020Q4

REPORT INFORMATION
  Report Type: Spontaneous
  Country: CA (occurrence: CA)
  Receive Date: 20201019
  Receipt Date: 20201123
  Transmission Date: 20210114
  Serious: Yes (Other)
  Sender: FDA-Public Use
  Company Number: CA-CELLTRION INC.-2019CA023383

PATIENT

DRUGS (9)
  1. INFLECTRA [Suspect]
     Active Substance: INFLIXIMAB-DYYB
     Dosage: 300 MG, EVERY 8 WEEKS
     Route: 042
     Dates: start: 20191230
  2. INFLECTRA [Suspect]
     Active Substance: INFLIXIMAB-DYYB
     Dosage: 300 MG, EVERY 8 WEEKS
     Route: 042
     Dates: start: 20200421
  3. INFLECTRA [Suspect]
     Active Substance: INFLIXIMAB-DYYB
     Dosage: 300 MG, EVERY 8 WEEKS
     Route: 042
     Dates: start: 20201009
  4. INFLECTRA [Suspect]
     Active Substance: INFLIXIMAB-DYYB
     Dosage: 300 MG, EVERY 8 WEEKS
     Route: 042
     Dates: start: 20200225
  5. INFLECTRA [Suspect]
     Active Substance: INFLIXIMAB-DYYB
     Dosage: 300 MG, EVERY 8 WEEKS
     Route: 042
     Dates: start: 20200625
  6. METHOTREXATE. [Concomitant]
     Active Substance: METHOTREXATE
     Dosage: 7.5 MG, WEEKLY
     Route: 048
  7. INFLECTRA [Suspect]
     Active Substance: INFLIXIMAB-DYYB
     Dosage: 300 MG, EVERY 8 WEEKS
     Route: 042
     Dates: start: 20191104
  8. INFLECTRA [Suspect]
     Active Substance: INFLIXIMAB-DYYB
     Dosage: 300 MG, EVERY 8 WEEKS
     Route: 042
     Dates: start: 20200811
  9. INFLECTRA [Suspect]
     Active Substance: INFLIXIMAB-DYYB
     Indication: RHEUMATOID ARTHRITIS
     Dosage: 300 MG, EVERY 8 WEEKS
     Route: 042
     Dates: start: 20190906

REACTIONS (7)
  - Blood pressure fluctuation [Unknown]
  - Off label use [Unknown]
  - Arteriovenous malformation [Unknown]
  - Intentional product use issue [Unknown]
  - Seizure [Unknown]
  - Malaise [Unknown]
  - Weight increased [Unknown]

NARRATIVE: CASE EVENT DATE: 20190906
